FAERS Safety Report 8282930-6 (Version None)
Quarter: 2012Q2

REPORT INFORMATION
  Report Type: 
  Country: None (occurrence: None)
  Receive Date: 20120409
  Receipt Date: 20120320
  Transmission Date: 20120825
  Serious: No
  Sender: FDA-Public Use
  Company Number: 2011027490

PATIENT
  Age: 45 Year
  Sex: Female
  Weight: 108.4097 kg

DRUGS (24)
  1. ZITHROMAX [Concomitant]
  2. JANUVIA (DRUG USED IN DIABETES) [Concomitant]
  3. HUMULIN (INSULIN HUMAN) [Concomitant]
  4. FLEXERIL [Concomitant]
  5. PULMICORT [Concomitant]
  6. ZYRTEC [Concomitant]
  7. FORADIL [Concomitant]
  8. ZETIA [Concomitant]
  9. INDOMETHACIN [Concomitant]
  10. AMARYL [Concomitant]
  11. HIZENTRA [Suspect]
     Indication: SELECTIVE IGG SUBCLASS DEFICIENCY
     Dosage: SEE IMAGE
     Route: 058
     Dates: start: 20110124
  12. HIZENTRA [Suspect]
     Indication: SELECTIVE IGG SUBCLASS DEFICIENCY
     Dosage: SEE IMAGE
     Route: 058
     Dates: start: 20110918, end: 20110918
  13. HIZENTRA [Suspect]
     Indication: SELECTIVE IGG SUBCLASS DEFICIENCY
     Dosage: SEE IMAGE
     Route: 058
     Dates: start: 20110124
  14. HIZENTRA [Suspect]
     Indication: SELECTIVE IGG SUBCLASS DEFICIENCY
     Dosage: SEE IMAGE
     Route: 058
     Dates: start: 20120314
  15. HIZENTRA [Suspect]
  16. SPIRIVA [Concomitant]
  17. PROAIR (PROCATEROL HYDROCHLORIDE) [Concomitant]
  18. HIZENTRA [Suspect]
  19. SPIRONOLACTONE [Concomitant]
  20. SYMBICORT [Concomitant]
  21. HIZENTRA [Suspect]
  22. HIZENTRA [Suspect]
  23. AVAPRO [Concomitant]
  24. NEXIUM [Concomitant]

REACTIONS (5)
  - SINUSITIS [None]
  - INFUSION SITE ERYTHEMA [None]
  - HEADACHE [None]
  - NAUSEA [None]
  - INFUSION SITE PRURITUS [None]
